FAERS Safety Report 9242670 (Version 1)
Quarter: 2013Q2

REPORT INFORMATION
  Report Type: Spontaneous
  Country: CA (occurrence: US)
  Receive Date: 20130419
  Receipt Date: 20130423
  Transmission Date: 20140414
  Serious: Yes (Hospitalization, Other)
  Sender: FDA-Public Use
  Company Number: US-PFIZER INC-2013119190

PATIENT
  Age: 5 Year
  Sex: Male

DRUGS (3)
  1. EPINEPHRINE [Suspect]
     Indication: ALLERGY TO ARTHROPOD STING
     Dosage: 1: 1000, 1.75 MG
     Route: 058
  2. ALBUTEROL [Concomitant]
     Indication: ALLERGY TO ARTHROPOD STING
     Dosage: 2.5 MG/3 CC, NEBULIZED
  3. DIPHENHYDRAMINE [Concomitant]
     Indication: ALLERGY TO ARTHROPOD STING
     Dosage: 20 MG, UNK
     Route: 030

REACTIONS (3)
  - Accidental overdose [Recovered/Resolved]
  - Ventricular arrhythmia [Recovered/Resolved]
  - Myocardial ischaemia [Unknown]
